FAERS Safety Report 5605619-8 (Version None)
Quarter: 2008Q1

REPORT INFORMATION
  Report Type: 
  Country: None (occurrence: None)
  Receive Date: 20080123
  Receipt Date: 20080123
  Transmission Date: 20080703
  Serious: Yes (Other)
  Sender: FDA-Public Use
  Company Number: None

PATIENT
  Sex: Male
  Weight: 56.6996 kg

DRUGS (1)
  1. LEVAQUIN [Suspect]
     Indication: URINARY TRACT INFECTION
     Dosage: 500MG ONCE DAILY PO
     Route: 048
     Dates: start: 20071110, end: 20071112

REACTIONS (2)
  - ANXIETY [None]
  - MUSCULOSKELETAL DISCOMFORT [None]
